FAERS Safety Report 19609662 (Version 1)
Quarter: 2021Q3

REPORT INFORMATION
  Report Type: Report from Study
  Country: US (occurrence: US)
  Receive Date: 20210726
  Receipt Date: 20210726
  Transmission Date: 20211014
  Serious: Yes (Other)
  Sender: FDA-Public Use
  Company Number: US-PFIZER INC-202100933789

PATIENT
  Weight: 3.54 kg

DRUGS (2)
  1. MORPHINE SULFATE. [Suspect]
     Active Substance: MORPHINE SULFATE
     Indication: ANALGESIC THERAPY
  2. MORPHINE SULFATE. [Suspect]
     Active Substance: MORPHINE SULFATE
     Indication: AGITATION
     Dosage: 0.1 MG/KG, ONE DOSE
     Route: 042

REACTIONS (3)
  - Infantile apnoea [Unknown]
  - Bradycardia neonatal [Unknown]
  - Neonatal hypoxia [Unknown]
